FAERS Safety Report 14057287 (Version 1)
Quarter: 2017Q4

REPORT INFORMATION
  Report Type: Report from Study
  Country: CO (occurrence: CO)
  Receive Date: 20171006
  Receipt Date: 20171006
  Transmission Date: 20180321
  Serious: Yes (Hospitalization)
  Sender: FDA-Public Use
  Company Number: PHHY2017CO144879

PATIENT
  Sex: Female
  Weight: 64 kg

DRUGS (1)
  1. VOTRIENT [Suspect]
     Active Substance: PAZOPANIB HYDROCHLORIDE
     Indication: RENAL CELL CARCINOMA
     Dosage: 400 MG, BID
     Route: 048
     Dates: start: 20170706

REACTIONS (4)
  - Yellow skin [Unknown]
  - Chromaturia [Unknown]
  - Liver disorder [Unknown]
  - Blood bilirubin increased [Unknown]
